FAERS Safety Report 8617368-2 (Version None)
Quarter: 2012Q3

REPORT INFORMATION
  Report Type: 
  Country: None (occurrence: None)
  Receive Date: 20120823
  Receipt Date: 20120731
  Transmission Date: 20120928
  Serious: Yes (Hospitalization)
  Sender: FDA-Public Use
  Company Number: JP-009507513-2012SP022014

PATIENT

DRUGS (47)
  1. ANTIVIRAL (UNSPECIFIED) [Suspect]
     Dosage: 1500 MG, QD
     Route: 048
     Dates: start: 20120303, end: 20120328
  2. ASPIRIN [Concomitant]
     Indication: CEREBRAL INFARCTION
     Dosage: 100 MG, QD
     Route: 048
  3. WARFARIN POTASSIUM [Concomitant]
     Dosage: 2.25 MG, QD
     Route: 048
     Dates: start: 20120405, end: 20120418
  4. TALION (BEPOTASTINE BESYLATE) [Concomitant]
     Indication: PROPHYLAXIS
     Dosage: 10 MG, QD
     Route: 048
     Dates: start: 20120221
  5. ATARAX [Concomitant]
     Indication: PRODUCT USED FOR UNKNOWN INDICATION
     Dosage: 25 MG, QD
     Route: 048
     Dates: start: 20120411
  6. WARFARIN POTASSIUM [Concomitant]
     Dosage: 3.25 MG, QD
     Route: 048
     Dates: start: 20120426
  7. TELAVIC [Suspect]
     Dosage: 1000 MG, ONCE
     Route: 048
     Dates: start: 20120329, end: 20120411
  8. WARFARIN POTASSIUM [Concomitant]
     Dosage: 3.25 MG, ONCE
     Route: 048
     Dates: end: 20120404
  9. NIZORAL [Concomitant]
     Indication: ECZEMA
     Dosage: UNK
     Route: 061
  10. MK-1459B [Concomitant]
     Indication: ECZEMA
     Dosage: UNK, UNKNOWN
     Route: 061
  11. HIRUDOID [Concomitant]
     Indication: PRODUCT USED FOR UNKNOWN INDICATION
     Dosage: UNK, UNKNOWN
     Route: 061
     Dates: start: 20120404
  12. WARFARIN POTASSIUM [Concomitant]
     Dosage: 2.25 MG, ONCE
     Route: 048
     Dates: start: 20120405, end: 20120418
  13. CANDESARTAN CILEXETIL AND HYDROCHLOROTHIAZIDE [Concomitant]
     Indication: HYPERTENSION
     Dosage: MIXTURE
     Route: 048
  14. REBETOL [Suspect]
     Dosage: 200 MG, QD
     Route: 048
     Dates: start: 20120502, end: 20120516
  15. REBETOL [Suspect]
     Dosage: 400 MG, QD
     Route: 048
     Dates: start: 20120517
  16. ASPIRIN [Concomitant]
     Dosage: 100 MG, ONCE
     Route: 048
  17. FLUVASTATIN [Concomitant]
     Indication: CEREBRAL INFARCTION
     Dosage: 20 MG, QD
     Route: 048
  18. IRBESARTAN [Concomitant]
     Indication: HYPERTENSION
     Dosage: UNK, UNKNOWN
     Route: 048
  19. LOCOID [Concomitant]
     Dosage: UNK
     Route: 061
  20. TELAVIC [Suspect]
     Indication: HEPATITIS C
     Dosage: 2250 MG, ONCE
     Route: 048
     Dates: start: 20120222, end: 20120302
  21. WARFARIN POTASSIUM [Concomitant]
     Dosage: 2.75 MG, ONCE
     Route: 048
     Dates: start: 20120419, end: 20120425
  22. PEG-INTRON [Suspect]
     Indication: HEPATITIS C
     Dosage: 100MCG/WEEK
     Route: 058
     Dates: start: 20120222
  23. REBETOL [Suspect]
     Dosage: 400 MG, QD
     Route: 048
     Dates: start: 20120303, end: 20120313
  24. REBETOL [Suspect]
     Dosage: 200 MG, QD
     Route: 048
     Dates: start: 20120314, end: 20120410
  25. ANTIVIRAL (UNSPECIFIED) [Suspect]
     Indication: HEPATITIS C
     Dosage: 2250 MG, QD
     Route: 048
     Dates: start: 20120222, end: 20120302
  26. NERISONA [Concomitant]
     Indication: ECZEMA
     Dosage: UNK, UNKNOWN
     Route: 051
  27. NERISONA [Concomitant]
     Dosage: UNK
     Route: 051
  28. NIZORAL [Concomitant]
     Dosage: UNK
     Route: 061
  29. WARFARIN POTASSIUM [Concomitant]
     Dosage: 2.75 MG, QD
     Route: 048
     Dates: start: 20120419, end: 20120425
  30. FLUVASTATIN [Concomitant]
     Route: 048
  31. TALION (BEPOTASTINE BESYLATE) [Concomitant]
     Dosage: 10 MG, ONCE
     Route: 048
     Dates: start: 20120221, end: 20120403
  32. NORVASC [Concomitant]
     Dosage: 5 MG, QD
     Route: 048
     Dates: start: 20120319
  33. XYZAL [Concomitant]
     Indication: PRODUCT USED FOR UNKNOWN INDICATION
     Dosage: 5 MG, QD
     Route: 048
     Dates: start: 20120404
  34. ANTEBATE [Concomitant]
     Indication: PRODUCT USED FOR UNKNOWN INDICATION
     Dosage: UNK, UNKNOWN
     Route: 061
     Dates: start: 20120404
  35. TELAVIC [Suspect]
     Dosage: 1500 MG, ONCE
     Route: 048
     Dates: start: 20120303, end: 20120328
  36. NORVASC [Concomitant]
     Dosage: 5 MG, ONCE
     Route: 048
     Dates: start: 20120319
  37. REBETOL [Suspect]
     Indication: HEPATITIS C
     Dosage: 800 MG, QD
     Route: 048
     Dates: start: 20120222, end: 20120302
  38. ANTIVIRAL (UNSPECIFIED) [Suspect]
     Dosage: 1000 MG, QD
     Route: 048
     Dates: start: 20120329, end: 20120411
  39. WARFARIN POTASSIUM [Concomitant]
     Indication: CEREBRAL INFARCTION
     Dosage: 3.25 MG, QD
     Route: 048
     Dates: end: 20120404
  40. NORVASC [Concomitant]
     Indication: HYPERTENSION
     Dosage: 10 MG, QD
     Route: 048
     Dates: end: 20120318
  41. LOCOID [Concomitant]
     Indication: ECZEMA
     Dosage: UNK, UNKNOWN
     Route: 061
  42. MYSER (DIFLUPREDNATE) [Concomitant]
     Indication: ECZEMA
     Dosage: PROPER QUANTITY
     Route: 061
  43. DIFLUPREDNATE [Concomitant]
     Indication: ECZEMA
     Dosage: UNK, UNKNOWN
     Route: 061
  44. ALLOPURINOL [Concomitant]
     Indication: PRODUCT USED FOR UNKNOWN INDICATION
     Dosage: 100 MG, QD
     Route: 048
     Dates: start: 20120411, end: 20120424
  45. WARFARIN POTASSIUM [Concomitant]
     Dosage: 3.25 MG, ONCE
     Route: 048
     Dates: start: 20120426
  46. NORVASC [Concomitant]
     Indication: HYPERTENSION
     Dosage: 10 MG, ONCE
     Route: 048
     Dates: end: 20120318
  47. RINDERON A [Concomitant]
     Indication: ECZEMA
     Dosage: PROPER QUANTITY
     Route: 061

REACTIONS (1)
  - DECREASED APPETITE [None]
